FAERS Safety Report 14319271 (Version 2)
Quarter: 2018Q1

REPORT INFORMATION
  Report Type: Spontaneous
  Country: US (occurrence: US)
  Receive Date: 20171222
  Receipt Date: 20180115
  Transmission Date: 20180509
  Serious: Yes (Other)
  Sender: FDA-Public Use
  Company Number: US-BAUSCH-BL-2017-034267

PATIENT
  Age: 60 Year
  Sex: Female

DRUGS (1)
  1. ADVANCED EYE RELIEF/EYE WASH [Suspect]
     Active Substance: WATER
     Indication: PRODUCT USED FOR UNKNOWN INDICATION
     Route: 065
     Dates: start: 201711, end: 2017

REACTIONS (4)
  - Eye pain [Unknown]
  - Wrong technique in product usage process [Unknown]
  - Product packaging confusion [Unknown]
  - Corneal disorder [Unknown]

NARRATIVE: CASE EVENT DATE: 201711
